FAERS Safety Report 12418737 (Version 1)
Quarter: 2016Q2

REPORT INFORMATION
  Report Type: Spontaneous
  Country: US (occurrence: None)
  Receive Date: 20160527
  Receipt Date: 20160527
  Transmission Date: 20160815
  Serious: Yes (Other)
  Sender: FDA-Public Use
  Company Number: None

PATIENT
  Age: 63 Year
  Sex: Male
  Weight: 87.1 kg

DRUGS (1)
  1. IFOSFAMIDE, 50 MG/ML TEVA [Suspect]
     Active Substance: IFOSFAMIDE
     Indication: LEIOMYOSARCOMA METASTATIC
     Route: 042
     Dates: start: 20160518, end: 20160523

REACTIONS (1)
  - Toxic encephalopathy [None]

NARRATIVE: CASE EVENT DATE: 20160518
